FAERS Safety Report 9648449 (Version 1)
Quarter: 2013Q4

REPORT INFORMATION
  Report Type: Spontaneous
  Country: IT (occurrence: FR)
  Receive Date: 20131028
  Receipt Date: 20131028
  Transmission Date: 20140711
  Serious: Yes (Hospitalization)
  Sender: FDA-Public Use
  Company Number: FR-FRI-1000050483

PATIENT
  Age: 71 Year
  Sex: Male

DRUGS (3)
  1. NEBIVOLOL [Suspect]
     Indication: ATRIAL FIBRILLATION
     Dosage: 10 MG
     Route: 048
  2. XARELTO [Suspect]
     Route: 048
     Dates: start: 20130615, end: 20130713
  3. FLECAINE [Concomitant]
     Route: 048

REACTIONS (4)
  - Fatigue [Recovered/Resolved]
  - Gastrointestinal disorder [Recovered/Resolved]
  - Nausea [Recovered/Resolved]
  - Off label use [Not Recovered/Not Resolved]
